FAERS Safety Report 16709861 (Version 8)
Quarter: 2020Q2

REPORT INFORMATION
  Report Type: Spontaneous
  Country: US (occurrence: US)
  Receive Date: 20190816
  Receipt Date: 20200602
  Transmission Date: 20200713
  Serious: No
  Sender: FDA-Public Use
  Company Number: US-PFIZER INC-2019227376

PATIENT
  Age: 53 Year
  Sex: Male

DRUGS (1)
  1. LYRICA [Suspect]
     Active Substance: PREGABALIN
     Indication: FIBROMYALGIA
     Dosage: 150 MG, 2X/DAY
     Route: 048

REACTIONS (9)
  - Back pain [Unknown]
  - Musculoskeletal pain [Unknown]
  - Road traffic accident [Unknown]
  - Impaired work ability [Unknown]
  - Hypercalcaemia [Unknown]
  - Primary hypothyroidism [Unknown]
  - Arthralgia [Unknown]
  - Androgen deficiency [Unknown]
  - Goitre [Unknown]
